FAERS Safety Report 20974635 (Version 1)
Quarter: 2022Q2

REPORT INFORMATION
  Report Type: Spontaneous
  Country: US (occurrence: None)
  Receive Date: 20220616
  Receipt Date: 20220616
  Transmission Date: 20220721
  Serious: Yes (unspecified)
  Sender: FDA-Public Use
  Company Number: None

PATIENT
  Age: 51 Year
  Sex: Female
  Weight: 65.25 kg

DRUGS (7)
  1. MIRALAX [Suspect]
     Active Substance: POLYETHYLENE GLYCOL 3350
     Indication: Bowel preparation
     Dates: start: 20220615, end: 20220615
  2. JARDIANCE [Concomitant]
     Active Substance: EMPAGLIFLOZIN
  3. SYNTHROID [Concomitant]
     Active Substance: LEVOTHYROXINE SODIUM
  4. AMLODIPINE BESYLATE [Concomitant]
     Active Substance: AMLODIPINE BESYLATE
  5. VITAMIN B12 [Concomitant]
     Active Substance: CYANOCOBALAMIN
  6. VITAMIN D [Concomitant]
     Active Substance: VITAMIN D NOS
  7. VYVANSE [Concomitant]
     Active Substance: LISDEXAMFETAMINE DIMESYLATE

REACTIONS (11)
  - Nausea [None]
  - Abdominal pain [None]
  - Hyperhidrosis [None]
  - Feeling hot [None]
  - Anal incontinence [None]
  - Pain in extremity [None]
  - Musculoskeletal stiffness [None]
  - Screaming [None]
  - Depressed level of consciousness [None]
  - Heart rate increased [None]
  - Malaise [None]

NARRATIVE: CASE EVENT DATE: 20220615
